FAERS Safety Report 7212303-6 (Version None)
Quarter: 2011Q1

REPORT INFORMATION
  Report Type: 
  Country: None (occurrence: None)
  Receive Date: 20110106
  Receipt Date: 20101228
  Transmission Date: 20110831
  Serious: Yes (Hospitalization, Other)
  Sender: FDA-Public Use
  Company Number: PHHO2010JP19704

PATIENT
  Sex: Male
  Weight: 63 kg

DRUGS (12)
  1. ALISKIREN [Suspect]
     Indication: CARDIAC FAILURE
  2. ARTIST [Suspect]
     Indication: CARDIAC FAILURE CHRONIC
     Dosage: UNK
     Dates: start: 20090630
  3. EPINASTINE HYDROCHLORIDE [Suspect]
     Indication: NASOPHARYNGITIS
     Dosage: UNK
     Dates: start: 20101227, end: 20101228
  4. BLINDED ALISKIREN [Suspect]
     Indication: CARDIAC FAILURE
     Dosage: CODE NOT BROKEN
     Route: 048
     Dates: start: 20100803
  5. BLINDED ENALAPRIL [Suspect]
     Indication: CARDIAC FAILURE
     Dosage: CODE NOT BROKEN
     Route: 048
     Dates: start: 20100803
  6. ASVERIN [Suspect]
     Indication: NASOPHARYNGITIS
     Dosage: UNK
     Dates: start: 20101227, end: 20101228
  7. KIPRES [Suspect]
     Indication: NASOPHARYNGITIS
     Dosage: UNK
     Dates: start: 20101227, end: 20101228
  8. COMPARATOR ENALAPRIL [Suspect]
     Indication: CARDIAC FAILURE
  9. BLINDED NO TREATMENT RECEIVED [Suspect]
     Indication: CARDIAC FAILURE
     Dosage: CODE NOT BROKEN
     Route: 048
     Dates: start: 20100803
  10. CLARITHROMYCIN [Suspect]
     Indication: NASOPHARYNGITIS
     Dosage: UNK
     Dates: start: 20101227, end: 20101228
  11. AZULENE [Suspect]
     Indication: NASOPHARYNGITIS
     Dosage: UNK
     Dates: start: 20101227, end: 20101228
  12. WARFARIN [Concomitant]
     Dosage: UNK
     Dates: start: 20090701

REACTIONS (8)
  - PLEURAL EFFUSION [None]
  - NASOPHARYNGITIS [None]
  - CARDIAC FAILURE [None]
  - COUGH [None]
  - PRODUCTIVE COUGH [None]
  - DYSPNOEA [None]
  - MALAISE [None]
  - BRAIN NATRIURETIC PEPTIDE INCREASED [None]
